FAERS Safety Report 7418003-1 (Version None)
Quarter: 2011Q2

REPORT INFORMATION
  Report Type: 
  Country: None (occurrence: None)
  Receive Date: 20110415
  Receipt Date: 20110406
  Transmission Date: 20111010
  Serious: No
  Sender: FDA-Public Use
  Company Number: JP-ASTRAZENECA-2011SE18101

PATIENT
  Age: 25203 Day
  Sex: Female
  Weight: 73 kg

DRUGS (9)
  1. ASPIRIN [Concomitant]
     Route: 048
  2. ETODOLAC [Concomitant]
     Route: 048
  3. SYMBICORT [Suspect]
     Indication: ASTHMA
     Dosage: 1 DOSAGE FORM, FOUR TIMES A DAY.
     Route: 055
     Dates: start: 20110301, end: 20110316
  4. AMLODIPINE [Concomitant]
     Route: 048
  5. LANSOPRAZOLE [Concomitant]
     Route: 065
  6. MUCOSTA [Concomitant]
     Route: 048
  7. AMOBAN [Concomitant]
     Route: 048
  8. CLARITIN [Suspect]
     Indication: RHINITIS ALLERGIC
     Route: 048
     Dates: start: 20110301
  9. CLARITH [Suspect]
     Indication: PHARYNGITIS
     Route: 048
     Dates: start: 20110301

REACTIONS (1)
  - DRUG ERUPTION [None]
